FAERS Safety Report 20025261 (Version 1)
Quarter: 2021Q4

REPORT INFORMATION
  Report Type: Report from Study
  Country: US (occurrence: US)
  Receive Date: 20211102
  Receipt Date: 20211102
  Transmission Date: 20220303
  Serious: Yes (Other)
  Sender: FDA-Public Use
  Company Number: US-JAZZ-2021-US-013208

PATIENT
  Age: 52 Year
  Sex: Female
  Weight: 123 kg

DRUGS (3)
  1. XYREM [Suspect]
     Active Substance: SODIUM OXYBATE
     Indication: Narcolepsy
     Dosage: 2.25 GRAM, BID
     Route: 048
     Dates: start: 201503, end: 201503
  2. XYREM [Suspect]
     Active Substance: SODIUM OXYBATE
     Indication: Cataplexy
     Dosage: 3 GRAM ,BID
     Route: 048
     Dates: start: 201503, end: 201503
  3. XYREM [Suspect]
     Active Substance: SODIUM OXYBATE
     Dosage: 4.5 GRAM, BID
     Route: 048
     Dates: start: 201503

REACTIONS (8)
  - Blood pressure increased [Unknown]
  - Pelvic pain [Unknown]
  - Conjunctivitis allergic [Unknown]
  - Neurodermatitis [Unknown]
  - Eustachian tube disorder [Unknown]
  - Heart rate increased [Unknown]
  - Body mass index increased [Unknown]
  - Arthralgia [Unknown]

NARRATIVE: CASE EVENT DATE: 20200228
